FAERS Safety Report 8139616-8 (Version None)
Quarter: 2012Q1

REPORT INFORMATION
  Report Type: 
  Country: None (occurrence: None)
  Receive Date: 20120215
  Receipt Date: 20120210
  Transmission Date: 20120608
  Serious: No
  Sender: FDA-Public Use
  Company Number: US-BAYER-2012-014245

PATIENT
  Age: 77 Year
  Sex: Female
  Weight: 62 kg

DRUGS (4)
  1. NEXIUM [Concomitant]
  2. COUMADIN [Concomitant]
  3. NAPROXEN (ALEVE) [Suspect]
     Dosage: 1 TABLET
     Route: 061
  4. ALEVE (CAPLET) [Suspect]

REACTIONS (2)
  - NAUSEA [None]
  - NO ADVERSE EVENT [None]
